FAERS Safety Report 5292585-0 (Version None)
Quarter: 2007Q2

REPORT INFORMATION
  Report Type: 
  Country: None (occurrence: None)
  Receive Date: 20070404
  Receipt Date: 20070321
  Transmission Date: 20071010
  Serious: Yes (Hospitalization, Other)
  Sender: FDA-Public Use
  Company Number: PAR_1454_2007

PATIENT
  Age: 71 Year
  Sex: Male

DRUGS (5)
  1. ALLOPURINOL [Suspect]
     Indication: CONDITION AGGRAVATED
     Dosage: 100 MG QDAY PO
     Route: 048
  2. ALLOPURINOL [Suspect]
     Indication: GOUT
     Dosage: 100 MG QDAY PO
     Route: 048
  3. GLICLAZIDE [Concomitant]
  4. METFORMIN HCL [Concomitant]
  5. CALCITRIOL [Concomitant]

REACTIONS (3)
  - EOSINOPHILIC PUSTULAR FOLLICULITIS [None]
  - EXCORIATION [None]
  - POST INFLAMMATORY PIGMENTATION CHANGE [None]
